FAERS Safety Report 9820729 (Version 1)
Quarter: 2013Q4

REPORT INFORMATION
  Report Type: Spontaneous
  Country: US (occurrence: None)
  Receive Date: 20131025
  Receipt Date: 20131025
  Transmission Date: 20140711
  Serious: Yes (Other)
  Sender: FDA-Public Use
  Company Number: AP356-00100-SPO-US

PATIENT
  Sex: Female
  Weight: 90.9 kg

DRUGS (8)
  1. BELVIQ [Suspect]
     Indication: OBESITY
     Route: 048
     Dates: start: 201308
  2. LIPITOR (ATORVASTAIN CALCIUM) [Concomitant]
     Indication: OBESITY
  3. LISINOPRIL (LISINOPRIL) [Concomitant]
  4. PANTOPRAZOLE (PANTOPRAZOLE) [Concomitant]
  5. BISOPROLOL (BISOPROLOL) [Concomitant]
  6. MULTIVITAMIN (MULTIVITAMINS) [Concomitant]
  7. HYDROCHLOROTHIAZIDE (HYDROCHLOROTHIAZIDE) [Concomitant]
  8. SHORT-ACTING AND LONG-ACTING INSULIN (INSULIN) [Concomitant]

REACTIONS (4)
  - Fatigue [None]
  - Cough [None]
  - Diarrhoea [None]
  - Drug ineffective [None]
